FAERS Safety Report 7723210-4 (Version None)
Quarter: 2011Q3

REPORT INFORMATION
  Report Type: 
  Country: None (occurrence: None)
  Receive Date: 20110901
  Receipt Date: 20110111
  Transmission Date: 20111222
  Serious: No
  Sender: FDA-Public Use
  Company Number: US-BAYER-2011-003649

PATIENT
  Age: 28 Year
  Sex: Female

DRUGS (1)
  1. MIRENA [Suspect]
     Indication: CONTRACEPTION
     Dosage: UNK
     Route: 015
     Dates: start: 20090901

REACTIONS (5)
  - VAGINAL HAEMORRHAGE [None]
  - DYSMENORRHOEA [None]
  - AMENORRHOEA [None]
  - METRORRHAGIA [None]
  - DEVICE DISLOCATION [None]
